FAERS Safety Report 16666677 (Version 1)
Quarter: 2019Q3

REPORT INFORMATION
  Report Type: Other
  Country: TR (occurrence: TR)
  Receive Date: 20190805
  Receipt Date: 20190805
  Transmission Date: 20191004
  Serious: Yes (Other)
  Sender: FDA-Public Use
  Company Number: TR-AJANTA PHARMA USA INC.-2072742

PATIENT
  Age: 4 Year
  Sex: Female

DRUGS (1)
  1. CLARITHROMYCIN (ANDA 206714) [Suspect]
     Active Substance: CLARITHROMYCIN
     Indication: OTITIS MEDIA
     Route: 048

REACTIONS (1)
  - Hoigne^s syndrome [Recovered/Resolved]
